FAERS Safety Report 9938574 (Version 1)
Quarter: 2014Q1

REPORT INFORMATION
  Report Type: Report from Study
  Country: US (occurrence: US)
  Receive Date: 20140303
  Receipt Date: 20140303
  Transmission Date: 20141002
  Serious: Yes (Other)
  Sender: FDA-Public Use
  Company Number: US-ROCHE-1346475

PATIENT
  Age: 64 Year
  Sex: Female

DRUGS (6)
  1. LUCENTIS [Suspect]
     Indication: AGE-RELATED MACULAR DEGENERATION
     Dosage: BOTH EYES
     Route: 050
  2. LUCENTIS [Suspect]
     Indication: CYSTOID MACULAR OEDEMA
  3. LUCENTIS [Suspect]
     Indication: DIABETIC RETINOPATHY
  4. LUCENTIS [Suspect]
     Indication: DIABETIC RETINAL OEDEMA
  5. LUCENTIS [Suspect]
     Indication: DIABETIC RETINOPATHY
  6. AVASTIN [Suspect]
     Indication: AGE-RELATED MACULAR DEGENERATION
     Dosage: BOTH EYES
     Route: 065
     Dates: start: 2007

REACTIONS (6)
  - Retinal oedema [Unknown]
  - Vitreous detachment [Unknown]
  - Cataract nuclear [Unknown]
  - Visual acuity reduced [Unknown]
  - Overdose [Unknown]
  - Off label use [Unknown]
